FAERS Safety Report 8900801 (Version 1)
Quarter: 2012Q4

REPORT INFORMATION
  Report Type: 
  Country: US (occurrence: US)
  Receive Date: 20121109
  Receipt Date: 20121109
  Transmission Date: 20130627
  Serious: Yes (Hospitalization)
  Sender: FDA-Public Use
  Company Number: US-B.I. PHARMACEUTICALS,INC./RIDGEFIELD-2012-BP-27275BP

PATIENT
  Age: 75 Year
  Sex: Male
  Weight: 68 kg

DRUGS (10)
  1. PRADAXA [Suspect]
     Indication: ATRIAL FIBRILLATION
     Dosage: 300 mg
     Route: 048
     Dates: start: 201106, end: 201206
  2. XARELTO [Concomitant]
     Indication: CARDIAC DISORDER
     Dosage: 10 mg
     Route: 048
     Dates: start: 201210
  3. L THYROXINE [Concomitant]
     Indication: THYROID HORMONE REPLACEMENT THERAPY
     Dosage: 100 mcg
     Route: 042
     Dates: start: 2007
  4. SIMVASTATIN [Concomitant]
     Indication: BLOOD CHOLESTEROL INCREASED
     Dosage: 20 mg
     Route: 048
     Dates: start: 2011
  5. ISOSORBIDE [Concomitant]
     Indication: PROMOTION OF PERIPHERAL CIRCULATION
     Dosage: 30 mg
     Route: 048
     Dates: start: 201210
  6. FUROSEMIDE [Concomitant]
     Indication: FLUID RETENTION
     Dosage: 20 mg
     Route: 048
     Dates: start: 2007
  7. ALLOPURINOL [Concomitant]
     Indication: GOUT
     Dosage: 300 mg
     Route: 048
     Dates: start: 2007
  8. DEXALANT [Concomitant]
     Indication: GASTROOESOPHAGEAL REFLUX DISEASE
     Dosage: 60 mg
     Route: 048
     Dates: start: 201209
  9. INSPIRA [Concomitant]
     Dosage: 25 mg
     Route: 048
     Dates: start: 2007
  10. CARVEDILOL [Concomitant]
     Indication: CARDIAC DISORDER
     Dosage: 12.4 mg
     Route: 048
     Dates: start: 2010

REACTIONS (5)
  - Abdominal pain upper [Recovered/Resolved]
  - Nausea [Recovered/Resolved]
  - Ulcer haemorrhage [Unknown]
  - Abnormal loss of weight [Unknown]
  - Helicobacter infection [Unknown]
